FAERS Safety Report 8138851-2 (Version None)
Quarter: 2012Q1

REPORT INFORMATION
  Report Type: 
  Country: None (occurrence: None)
  Receive Date: 20120215
  Receipt Date: 20120206
  Transmission Date: 20120608
  Serious: Yes (Hospitalization, Other)
  Sender: FDA-Public Use
  Company Number: US-ELI_LILLY_AND_COMPANY-US201009004080

PATIENT
  Sex: Female
  Weight: 54 kg

DRUGS (26)
  1. CALCIUM [Concomitant]
     Dosage: 300000 MG, QD
  2. VITAMIN B-12 [Concomitant]
     Dosage: 500 MG, QD
     Route: 060
  3. VALIUM [Concomitant]
     Dosage: 5 MG, PRN
  4. SYNTHROID [Concomitant]
  5. ANALGESICS [Concomitant]
     Indication: PAIN
  6. FORTEO [Suspect]
     Dosage: 20 UG, DAILY (1/D)
  7. FORTEO [Suspect]
     Dosage: 20 UG, QD
  8. LIDODERM [Concomitant]
     Dosage: UNK, BID
     Route: 062
  9. OXYCONTIN [Concomitant]
     Dosage: 20 MG, BID
  10. ESTRACE [Concomitant]
     Dosage: 1 MG, QD
  11. FORTEO [Suspect]
     Dosage: 20 UG, QD
  12. VITAMIN B-12 [Concomitant]
     Dosage: UNK UNK, MONTHLY (1/M)
  13. CALCIUM VIT D [Concomitant]
     Dosage: 1200 MG, QD
  14. CALCIUM [Concomitant]
     Indication: MINERAL SUPPLEMENTATION
     Dosage: UNK, UNKNOWN
  15. FORTEO [Suspect]
     Dosage: 20 UG, DAILY (1/D)
  16. FORTEO [Suspect]
     Dosage: 20 UG, QD
  17. CALCIUM [Concomitant]
     Dosage: 2000 U, UNKNOWN
  18. FORTEO [Suspect]
     Indication: OSTEOPOROSIS
     Dosage: 20 UG, DAILY (1/D)
     Route: 058
  19. FORTEO [Suspect]
     Dosage: 20 UG, DAILY (1/D)
  20. FORTEO [Suspect]
     Dosage: 20 UG, QD
  21. FORTEO [Suspect]
     Dosage: 20 UG, QD
     Route: 065
     Dates: end: 20110602
  22. FORTEO [Suspect]
     Dosage: 20 UG, QD
     Route: 065
     Dates: start: 20110608
  23. FLEXERIL [Concomitant]
     Dosage: 10 MG, TID
  24. TRAZODONE HCL [Concomitant]
     Indication: SLEEP DISORDER
     Dosage: 150 MG, QD
  25. PRASTERONE [Concomitant]
     Indication: RENAL DISORDER
     Dosage: 5 MG, BID
  26. EFFEXOR XR [Concomitant]
     Indication: DEPRESSION
     Dosage: 150 MG, QD

REACTIONS (28)
  - LIGAMENT SPRAIN [None]
  - HYPOAESTHESIA [None]
  - ASTHENIA [None]
  - GAIT DISTURBANCE [None]
  - FALL [None]
  - JOINT INJURY [None]
  - MUSCULAR WEAKNESS [None]
  - ORTHOSIS USER [None]
  - BACK PAIN [None]
  - NECK PAIN [None]
  - CONTUSION [None]
  - BONE DISORDER [None]
  - VOMITING [None]
  - ANKLE FRACTURE [None]
  - NEUROPATHY PERIPHERAL [None]
  - INCREASED UPPER AIRWAY SECRETION [None]
  - MUSCULOSKELETAL STIFFNESS [None]
  - EXOSTOSIS [None]
  - LUMBAR VERTEBRAL FRACTURE [None]
  - MUSCLE SPASMS [None]
  - BLOOD CALCIUM DECREASED [None]
  - PARAESTHESIA [None]
  - PAIN IN EXTREMITY [None]
  - SPINAL DISORDER [None]
  - FOOT FRACTURE [None]
  - ABASIA [None]
  - CALCIUM DEFICIENCY [None]
  - FEELING ABNORMAL [None]
